FAERS Safety Report 17480218 (Version 2)
Quarter: 2020Q2

REPORT INFORMATION
  Report Type: Report from Study
  Country: US (occurrence: US)
  Receive Date: 20200228
  Receipt Date: 20200417
  Transmission Date: 20200713
  Serious: No
  Sender: FDA-Public Use
  Company Number: NVSC2020US054714

PATIENT
  Age: 7 Year

DRUGS (1)
  1. ILARIS [Suspect]
     Active Substance: CANAKINUMAB
     Indication: FAMILIAL MEDITERRANEAN FEVER
     Dosage: 60 MG, Q4W
     Route: 058
     Dates: start: 2019

REACTIONS (4)
  - Pharyngeal swelling [Unknown]
  - Pharyngitis streptococcal [Unknown]
  - Dental caries [Unknown]
  - Oropharyngeal pain [Unknown]

NARRATIVE: CASE EVENT DATE: 201906
